FAERS Safety Report 6750046-3 (Version None)
Quarter: 2010Q2

REPORT INFORMATION
  Report Type: 
  Country: None (occurrence: None)
  Receive Date: 20100601
  Receipt Date: 20100520
  Transmission Date: 20101027
  Serious: Yes (Hospitalization, Other)
  Sender: FDA-Public Use
  Company Number: JP-PFIZER INC-2010011552

PATIENT
  Age: 68 Year
  Sex: Male
  Weight: 57 kg

DRUGS (3)
  1. SUNITINIB MALATE [Suspect]
     Indication: RENAL CELL CARCINOMA
     Dosage: 50 MG, 1X/DAY
     Route: 048
     Dates: start: 20100107
  2. SORAFENIB TOSILATE [Concomitant]
     Indication: RENAL CELL CARCINOMA
     Dosage: 800 MG, 2X/DAY
     Route: 048
     Dates: start: 20090819, end: 20100107
  3. DIAZEPAM [Concomitant]

REACTIONS (4)
  - DECREASED APPETITE [None]
  - DELIRIUM [None]
  - DIARRHOEA [None]
  - PLATELET COUNT DECREASED [None]
